FAERS Safety Report 10596903 (Version 1)
Quarter: 2014Q4

REPORT INFORMATION
  Report Type: Spontaneous
  Country: US (occurrence: US)
  Receive Date: 20141120
  Receipt Date: 20141120
  Transmission Date: 20150529
  Serious: No
  Sender: FDA-Public Use
  Company Number: US-GLAXOSMITHKLINE-US2014010429

PATIENT
  Age: 46 Year
  Sex: Male

DRUGS (2)
  1. LAMICTAL XR [Suspect]
     Active Substance: LAMOTRIGINE
     Indication: GENERALISED TONIC-CLONIC SEIZURE
  2. LAMICTAL IMMEDIATE RELEASE [Concomitant]
     Indication: GENERALISED TONIC-CLONIC SEIZURE

REACTIONS (1)
  - Dysphagia [Unknown]
